FAERS Safety Report 25906591 (Version 1)
Quarter: 2025Q4

REPORT INFORMATION
  Report Type: Spontaneous
  Country: US (occurrence: None)
  Receive Date: 20251010
  Receipt Date: 20251010
  Transmission Date: 20260118
  Serious: Yes (Death, Life-Threatening, Disabling)
  Sender: FDA-CTU
  Company Number: None

PATIENT
  Age: 40 Year
  Sex: Male
  Weight: 81 kg

DRUGS (1)
  1. LEXAPRO [Suspect]
     Active Substance: ESCITALOPRAM OXALATE

REACTIONS (8)
  - Antidepressant discontinuation syndrome [None]
  - Product communication issue [None]
  - Emotional disorder [None]
  - Fatigue [None]
  - Insomnia [None]
  - Abdominal discomfort [None]
  - Suicidal ideation [None]
  - Impaired work ability [None]
